FAERS Safety Report 10433682 (Version 2)
Quarter: 2014Q3

REPORT INFORMATION
  Report Type: Report from Study
  Country: MX (occurrence: MX)
  Receive Date: 20140905
  Receipt Date: 20140922
  Transmission Date: 20150326
  Serious: Yes (Other)
  Sender: FDA-Public Use
  Company Number: PHHY2014MX112527

PATIENT
  Age: 73 Year
  Sex: Female

DRUGS (4)
  1. VARTALON [Concomitant]
     Indication: ARTHROPATHY
     Dosage: 1 UKN (PACKET), DAILY
     Dates: start: 2012
  2. CALCITRIOL. [Concomitant]
     Active Substance: CALCITRIOL
     Indication: BONE DISORDER
     Dosage: 1 UKN, DAILY
     Dates: start: 2012
  3. CO-DIOVAN [Suspect]
     Active Substance: HYDROCHLOROTHIAZIDE\VALSARTAN
     Indication: HYPERTENSION
     Dosage: 1 DF, (160/12.5 MG), DAILY
     Route: 048
  4. CO-DIOVAN [Suspect]
     Active Substance: HYDROCHLOROTHIAZIDE\VALSARTAN
     Dosage: 0.5 DF (320/12.5 MG), DAILY
     Route: 048

REACTIONS (7)
  - Diabetes mellitus [Unknown]
  - Joint injury [Not Recovered/Not Resolved]
  - Musculoskeletal pain [Unknown]
  - Fall [Unknown]
  - Muscle spasms [Unknown]
  - Wrong technique in drug usage process [Not Recovered/Not Resolved]
  - Sciatic nerve injury [Unknown]
